FAERS Safety Report 14940786 (Version 3)
Quarter: 2018Q3

REPORT INFORMATION
  Report Type: Report from Study
  Country: DE (occurrence: DE)
  Receive Date: 20180525
  Receipt Date: 20180905
  Transmission Date: 20181010
  Serious: Yes (Other)
  Sender: FDA-Public Use
  Company Number: DE-PFIZER INC-2018208768

PATIENT
  Age: 7 Month
  Weight: 7.5 kg

DRUGS (30)
  1. CARBOPLATIN. [Suspect]
     Active Substance: CARBOPLATIN
     Indication: METASTASES TO SPINE
     Dosage: 500 MG/M2 (3 ? 500 MG/M2), UNK
  2. IFOSFAMIDE. [Concomitant]
     Active Substance: IFOSFAMIDE
     Indication: METASTASES TO SPINE
  3. CARBOPLATINUM [Concomitant]
     Active Substance: CARBOPLATIN
     Indication: METASTASES TO SPINE
  4. CYCLOPHOSPHAMIDE. [Suspect]
     Active Substance: CYCLOPHOSPHAMIDE
     Indication: ATYPICAL TERATOID/RHABDOID TUMOUR OF CNS
     Dosage: 430 MG, UNK
  5. CYCLOPHOSPHAMIDE. [Suspect]
     Active Substance: CYCLOPHOSPHAMIDE
     Indication: RHABDOID TUMOUR
  6. DOXORUBICIN [Concomitant]
     Active Substance: DOXORUBICIN
     Indication: METASTASES TO SPINE
  7. CARBOPLATIN. [Suspect]
     Active Substance: CARBOPLATIN
     Indication: RHABDOID TUMOUR
  8. METHOTREXATE SODIUM. [Suspect]
     Active Substance: METHOTREXATE SODIUM
     Indication: ATYPICAL TERATOID/RHABDOID TUMOUR OF CNS
  9. CYCLOPHOSPHAMIDE. [Suspect]
     Active Substance: CYCLOPHOSPHAMIDE
     Indication: METASTASES TO SPINE
  10. THIOTEPA. [Suspect]
     Active Substance: THIOTEPA
     Indication: RHABDOID TUMOUR
     Dosage: 300 MG/M2 (3 ? 300 MG/M2) , UNK
  11. IFOSFAMIDE. [Concomitant]
     Active Substance: IFOSFAMIDE
     Indication: RHABDOID TUMOUR
     Dosage: UNK
  12. CARBOPLATINUM [Concomitant]
     Active Substance: CARBOPLATIN
     Indication: ATYPICAL TERATOID/RHABDOID TUMOUR OF CNS
     Dosage: UNK
  13. CARBOPLATIN. [Suspect]
     Active Substance: CARBOPLATIN
     Indication: ATYPICAL TERATOID/RHABDOID TUMOUR OF CNS
  14. VINCRISTINE [Suspect]
     Active Substance: VINCRISTINE
     Indication: ATYPICAL TERATOID/RHABDOID TUMOUR OF CNS
     Dosage: 0.85 MG, UNK
  15. VINCRISTINE [Suspect]
     Active Substance: VINCRISTINE
     Indication: METASTASES TO SPINE
  16. DACTINOMYCIN [Suspect]
     Active Substance: DACTINOMYCIN
     Indication: METASTASES TO SPINE
  17. ETOPOSIDE. [Concomitant]
     Active Substance: ETOPOSIDE
     Indication: ATYPICAL TERATOID/RHABDOID TUMOUR OF CNS
     Dosage: UNK
  18. ETOPOSIDE. [Concomitant]
     Active Substance: ETOPOSIDE
     Indication: RHABDOID TUMOUR
  19. METHOTREXATE SODIUM. [Suspect]
     Active Substance: METHOTREXATE SODIUM
     Indication: METASTASES TO SPINE
  20. VINCRISTINE [Suspect]
     Active Substance: VINCRISTINE
     Indication: RHABDOID TUMOUR
  21. DACTINOMYCIN [Suspect]
     Active Substance: DACTINOMYCIN
     Indication: ATYPICAL TERATOID/RHABDOID TUMOUR OF CNS
  22. IFOSFAMIDE. [Concomitant]
     Active Substance: IFOSFAMIDE
     Indication: ATYPICAL TERATOID/RHABDOID TUMOUR OF CNS
  23. METHOTREXATE SODIUM. [Suspect]
     Active Substance: METHOTREXATE SODIUM
     Indication: RHABDOID TUMOUR
     Dosage: 3.5 MG, UNK
  24. THIOTEPA. [Suspect]
     Active Substance: THIOTEPA
     Indication: ATYPICAL TERATOID/RHABDOID TUMOUR OF CNS
  25. DACTINOMYCIN [Suspect]
     Active Substance: DACTINOMYCIN
     Indication: RHABDOID TUMOUR
     Dosage: 420 UG, UNK
  26. DOXORUBICIN [Concomitant]
     Active Substance: DOXORUBICIN
     Indication: RHABDOID TUMOUR
     Dosage: UNK
  27. CARBOPLATINUM [Concomitant]
     Active Substance: CARBOPLATIN
     Indication: RHABDOID TUMOUR
  28. ETOPOSIDE. [Concomitant]
     Active Substance: ETOPOSIDE
     Indication: METASTASES TO SPINE
  29. THIOTEPA. [Suspect]
     Active Substance: THIOTEPA
     Indication: METASTASES TO SPINE
  30. DOXORUBICIN [Concomitant]
     Active Substance: DOXORUBICIN
     Indication: ATYPICAL TERATOID/RHABDOID TUMOUR OF CNS

REACTIONS (1)
  - Venoocclusive disease [Recovered/Resolved]
